FAERS Safety Report 21787658 (Version 1)
Quarter: 2022Q4

REPORT INFORMATION
  Report Type: Report from Study
  Country: CH (occurrence: None)
  Receive Date: 20221228
  Receipt Date: 20221228
  Transmission Date: 20230113
  Serious: Yes (Hospitalization)
  Sender: FDA-Public Use
  Company Number: CH-ROCHE-2211010

PATIENT
  Age: 61 Year
  Sex: Female

DRUGS (16)
  1. PIRFENIDONE [Suspect]
     Active Substance: PIRFENIDONE
     Indication: Bronchiolitis obliterans syndrome
     Route: 048
     Dates: start: 20180508
  2. MYFORTIC [Concomitant]
     Active Substance: MYCOPHENOLATE SODIUM
  3. CALCIUM\VITAMINS [Concomitant]
     Active Substance: CALCIUM\VITAMINS
  4. AZITHROMYCIN [Concomitant]
     Active Substance: AZITHROMYCIN
  5. SULFAMETHOXAZOLE\TRIMETHOPRIM [Concomitant]
     Active Substance: SULFAMETHOXAZOLE\TRIMETHOPRIM
  6. PANTOZOL [Concomitant]
     Active Substance: PANTOPRAZOLE SODIUM
  7. PREDNISOLONE [Concomitant]
     Active Substance: PREDNISOLONE
  8. FUROSEMIDE [Concomitant]
     Active Substance: FUROSEMIDE
  9. LERCANIDIPINE [Concomitant]
     Active Substance: LERCANIDIPINE
  10. ESCITALOPRAM [Concomitant]
     Active Substance: ESCITALOPRAM OXALATE
  11. PRAVASTATIN [Concomitant]
     Active Substance: PRAVASTATIN
  12. PREGABALIN [Concomitant]
     Active Substance: PREGABALIN
  13. LEVEMIR [Concomitant]
     Active Substance: INSULIN DETEMIR
  14. INSULIN HUMAN [Concomitant]
     Active Substance: INSULIN HUMAN
  15. FERLECIT [Concomitant]
  16. PROGRAF [Concomitant]
     Active Substance: TACROLIMUS

REACTIONS (2)
  - General physical health deterioration [Unknown]
  - Dyspnoea [Unknown]

NARRATIVE: CASE EVENT DATE: 20180510
